FAERS Safety Report 22154818 (Version 2)
Quarter: 2023Q2

REPORT INFORMATION
  Report Type: Spontaneous
  Country: EU (occurrence: EU)
  Receive Date: 20230330
  Receipt Date: 20230413
  Transmission Date: 20230721
  Serious: Yes (Other)
  Sender: FDA-Public Use
  Company Number: DE-OCTA-GAM08023DE

PATIENT
  Sex: Male
  Weight: 7 kg

DRUGS (1)
  1. OCTAGAM IMMUNE GLOBULIN (HUMAN) [Suspect]
     Active Substance: HUMAN IMMUNOGLOBULIN G
     Indication: Lymphocytic leukaemia
     Dosage: MASKED
     Route: 042
     Dates: start: 20230309, end: 20230309

REACTIONS (6)
  - Hepatitis B e antibody positive [Unknown]
  - Hepatitis B surface antibody positive [Unknown]
  - Hepatitis B core antibody positive [Unknown]
  - Hepatitis E antibody positive [Unknown]
  - Misleading laboratory test result [Unknown]
  - Hepatitis [Unknown]

NARRATIVE: CASE EVENT DATE: 20230309
